FAERS Safety Report 16219192 (Version 4)
Quarter: 2019Q2

REPORT INFORMATION
  Report Type: Spontaneous
  Country: IT (occurrence: IT)
  Receive Date: 20190419
  Receipt Date: 20190607
  Transmission Date: 20190711
  Serious: Yes (Hospitalization, Other)
  Sender: FDA-Public Use
  Company Number: IT-GILEAD-2019-0403037

PATIENT
  Age: 44 Year
  Sex: Male
  Weight: 90 kg

DRUGS (7)
  1. DELTACORTENE [Concomitant]
     Active Substance: PREDNISONE
  2. PANTOPRAZOLE [Concomitant]
     Active Substance: PANTOPRAZOLE
  3. MELATONIN [Concomitant]
     Active Substance: MELATONIN
  4. DOBREN [Concomitant]
     Active Substance: SULPIRIDE
  5. EPCLUSA [Suspect]
     Active Substance: SOFOSBUVIR\VELPATASVIR
     Indication: CHRONIC HEPATITIS C
     Dosage: UNK
     Route: 065
     Dates: start: 20190407, end: 20190416
  6. SOLIRIS [Interacting]
     Active Substance: ECULIZUMAB
     Indication: PAROXYSMAL NOCTURNAL HAEMOGLOBINURIA
     Route: 065
  7. RIVOTRIL [Concomitant]
     Active Substance: CLONAZEPAM

REACTIONS (2)
  - Cardiac pacemaker insertion [Not Recovered/Not Resolved]
  - Bradycardia [Recovering/Resolving]

NARRATIVE: CASE EVENT DATE: 20190416
